FAERS Safety Report 10549736 (Version 3)
Quarter: 2015Q2

REPORT INFORMATION
  Report Type: Report from Study
  Country: US (occurrence: US)
  Receive Date: 20141028
  Receipt Date: 20150629
  Transmission Date: 20150821
  Serious: Yes (Hospitalization, Other)
  Sender: FDA-Public Use
  Company Number: US-GILEAD-2014-0119562

PATIENT
  Age: 55 Year
  Sex: Male

DRUGS (3)
  1. OLYSIO [Suspect]
     Active Substance: SIMEPREVIR
     Indication: CHRONIC HEPATITIS C
     Dosage: 2 DF, QD
     Route: 065
     Dates: start: 20140930
  2. SOFOSBUVIR [Suspect]
     Active Substance: SOFOSBUVIR
     Indication: CHRONIC HEPATITIS C
     Dosage: 2 DF, QD
     Route: 065
     Dates: start: 20140930, end: 20141007
  3. SOFOSBUVIR [Suspect]
     Active Substance: SOFOSBUVIR
     Dosage: 400 MG, UNK
     Route: 065

REACTIONS (10)
  - Headache [Unknown]
  - Blood pressure increased [Unknown]
  - Malaise [Unknown]
  - Overdose [Unknown]
  - Somnolence [Unknown]
  - Off label use [Unknown]
  - Poor quality sleep [Unknown]
  - Hypertensive crisis [Unknown]
  - Hypotension [Unknown]
  - Asthenia [Unknown]

NARRATIVE: CASE EVENT DATE: 20140930
